FAERS Safety Report 24225107 (Version 1)
Quarter: 2024Q3

REPORT INFORMATION
  Report Type: Spontaneous
  Country: US (occurrence: US)
  Receive Date: 20240820
  Receipt Date: 20240820
  Transmission Date: 20241017
  Serious: No
  Sender: ROCHE
  Company Number: US-ROCHE-3563921

PATIENT
  Sex: Male

DRUGS (1)
  1. ERIVEDGE [Suspect]
     Active Substance: VISMODEGIB
     Indication: Prostate cancer
     Route: 048
     Dates: start: 202402

REACTIONS (5)
  - Alopecia [Unknown]
  - Ageusia [Unknown]
  - Anosmia [Unknown]
  - Amnesia [Unknown]
  - Off label use [Unknown]
